FAERS Safety Report 5326556-2 (Version None)
Quarter: 2007Q2

REPORT INFORMATION
  Report Type: 
  Country: None (occurrence: None)
  Receive Date: 20070510
  Receipt Date: 20070424
  Transmission Date: 20071010
  Serious: Yes (Hospitalization, Other)
  Sender: FDA-Public Use
  Company Number: DSA_29824_2007

PATIENT
  Age: 87 Year
  Sex: Male

DRUGS (11)
  1. CITALOPRAM HYDROBROMIDE [Suspect]
     Indication: DEPRESSION
     Dosage: (20 MG QD)
     Dates: start: 20030901, end: 20030901
  2. LOSARTAN POSTASSIUM [Concomitant]
  3. OMEPRAZOLE [Concomitant]
  4. ALLOPURINOL [Concomitant]
  5. CLOPIDOGREL [Concomitant]
  6. CARVEDILOL [Concomitant]
  7. SIMVASTATIN [Concomitant]
  8. ISOSORBIDE MONONITRATE [Concomitant]
  9. TIMOLOL MALEATE [Concomitant]
  10. TEBETANE COMPUESTO [Concomitant]
  11. ALPRAZOLAM [Concomitant]

REACTIONS (6)
  - ASTHENIA [None]
  - BLOOD OSMOLARITY DECREASED [None]
  - CARDIOMEGALY [None]
  - INAPPROPRIATE ANTIDIURETIC HORMONE SECRETION [None]
  - URINE OSMOLARITY INCREASED [None]
  - WEIGHT DECREASED [None]
